FAERS Safety Report 25168534 (Version 2)
Quarter: 2025Q4

REPORT INFORMATION
  Report Type: Spontaneous
  Country: US (occurrence: US)
  Receive Date: 20250407
  Receipt Date: 20251007
  Transmission Date: 20260118
  Serious: No
  Sender: FERRING
  Company Number: US-FERRINGPH-2025FE01203

PATIENT
  Age: 70 Year
  Sex: Male
  Weight: 90.249 kg

DRUGS (2)
  1. ADSTILADRIN [Suspect]
     Active Substance: NADOFARAGENE FIRADENOVEC-VNCG
     Indication: Bladder cancer
     Dosage: 75 ML
     Route: 043
     Dates: start: 20250311, end: 20250311
  2. GEMTESA [Concomitant]
     Active Substance: VIBEGRON
     Indication: Muscle spasms
     Dosage: UNK, DAILY
     Route: 048
     Dates: start: 20250304, end: 20250311

REACTIONS (2)
  - Bladder spasm [Recovered/Resolved]
  - Instillation site discharge [Recovered/Resolved]

NARRATIVE: CASE EVENT DATE: 20250311
